FAERS Safety Report 5051794-6 (Version None)
Quarter: 2006Q3

REPORT INFORMATION
  Report Type: 
  Country: None (occurrence: None)
  Receive Date: 20060712
  Receipt Date: 20060712
  Transmission Date: 20061208
  Serious: Yes (Hospitalization)
  Sender: FDA-Public Use
  Company Number: None

PATIENT
  Age: 49 Year
  Sex: Male
  Weight: 99.8 kg

DRUGS (1)
  1. CEFTRIAXONE [Suspect]
     Indication: STAPHYLOCOCCAL BACTERAEMIA
     Dosage: 2G . 2G Q24H , INTRAVEN
     Route: 042
     Dates: start: 20060327, end: 20060419

REACTIONS (2)
  - NEUTROPENIA [None]
  - THROMBOCYTOPENIA [None]
